FAERS Safety Report 9459417 (Version 1)
Quarter: 2013Q3

REPORT INFORMATION
  Report Type: Spontaneous
  Country: US (occurrence: US)
  Receive Date: 20130815
  Receipt Date: 20130815
  Transmission Date: 20140515
  Serious: No
  Sender: FDA-Public Use
  Company Number: US-009507513-1307USA016866

PATIENT
  Sex: Male

DRUGS (1)
  1. VICTRELIS [Suspect]
     Route: 048

REACTIONS (2)
  - Incorrect product storage [Unknown]
  - No adverse event [Unknown]
